FAERS Safety Report 7631595-2 (Version None)
Quarter: 2011Q3

REPORT INFORMATION
  Report Type: 
  Country: None (occurrence: None)
  Receive Date: 20110715
  Receipt Date: 20110706
  Transmission Date: 20111222
  Serious: Yes (Other)
  Sender: FDA-Public Use
  Company Number: USA/USA/11/0019018

PATIENT
  Age: 67 Year
  Sex: Male

DRUGS (1)
  1. TERBINAFINE HYDROCHLORIDE [Suspect]
     Indication: ONYCHOMYCOSIS
     Dosage: 250 MG, 1 IN 1 D, ORAL
     Route: 048

REACTIONS (3)
  - TACHYCARDIA [None]
  - MUCOSAL DRYNESS [None]
  - PUSTULAR PSORIASIS [None]
